FAERS Safety Report 4460819-8 (Version None)
Quarter: 2004Q3

REPORT INFORMATION
  Report Type: 
  Country: None (occurrence: None)
  Receive Date: 20040923
  Receipt Date: 20040909
  Transmission Date: 20050211
  Serious: Yes (Hospitalization)
  Sender: FDA-Public Use
  Company Number: 2004-120181-NL

PATIENT
  Age: 24 Year
  Sex: Female
  Weight: 86.4 kg

DRUGS (4)
  1. REMERON [Suspect]
     Indication: DEPRESSION
     Dosage: 45 MG DAILY ORAL
     Route: 048
     Dates: start: 20030601
  2. PAXIL [Concomitant]
  3. PRILOSEC [Concomitant]
  4. ALVERT [Concomitant]

REACTIONS (10)
  - BIPOLAR DISORDER [None]
  - DELUSION [None]
  - FIBULA FRACTURE [None]
  - HALLUCINATION [None]
  - INJURY [None]
  - INTENTIONAL SELF-INJURY [None]
  - LUMBAR VERTEBRAL FRACTURE [None]
  - OPEN FRACTURE [None]
  - SUICIDE ATTEMPT [None]
  - TIBIA FRACTURE [None]
